FAERS Safety Report 8484580-5 (Version None)
Quarter: 2012Q3

REPORT INFORMATION
  Report Type: 
  Country: None (occurrence: None)
  Receive Date: 20120703
  Receipt Date: 20120319
  Transmission Date: 20120928
  Serious: No
  Sender: FDA-Public Use
  Company Number: US-TEVA-328895USA

PATIENT
  Age: 55 Year
  Sex: Female
  Weight: 69.008 kg

DRUGS (1)
  1. NUVIGIL [Suspect]
     Route: 048

REACTIONS (2)
  - FEELING JITTERY [None]
  - ANXIETY [None]
